FAERS Safety Report 9269089 (Version 1)
Quarter: 2013Q2

REPORT INFORMATION
  Report Type: Spontaneous
  Country: US (occurrence: None)
  Receive Date: 20130501
  Receipt Date: 20130508
  Transmission Date: 20140414
  Serious: Yes (Death, Other)
  Sender: FDA-Public Use
  Company Number: UTC-031937

PATIENT
  Age: 73 Year
  Sex: Male
  Weight: 88.6 kg

DRUGS (4)
  1. TYVASO (6 MICROGRAM, AEROSOL FOR INHALATION) (TREPROSTINIL SODIUM) [Suspect]
     Indication: PULMONARY ARTERIAL HYPERTENSION
     Dosage: 18 TO 54 MICROGRAMS (4 IN 1 D), INHALATION
     Route: 055
     Dates: start: 20130307, end: 2013
  2. REVATIO (SILDENAFIL CITRATE) [Concomitant]
  3. COUMADIN (WARFARIN SODIUM) [Concomitant]
  4. TRACLEER (BOSENTAN) [Concomitant]

REACTIONS (6)
  - Death [None]
  - Rectal tenesmus [None]
  - Cyanosis [None]
  - Polydipsia [None]
  - Increased appetite [None]
  - Malaise [None]
